FAERS Safety Report 4276905-1 (Version None)
Quarter: 2004Q1

REPORT INFORMATION
  Report Type: 
  Country: None (occurrence: None)
  Receive Date: 20040120
  Receipt Date: 20040109
  Transmission Date: 20041129
  Serious: Yes (Hospitalization)
  Sender: FDA-Public Use
  Company Number: 163-20785-03120069

PATIENT
  Age: 45 Year
  Sex: Male

DRUGS (21)
  1. THALOMID [Suspect]
     Indication: PLASMACYTOMA
     Dosage: 100 MG, QHS, ORAL
     Route: 048
     Dates: start: 20031223
  2. PRINIVIL [Concomitant]
  3. FLONASE (FLUTICASONE PROPIONATE) (SUSPENSION) [Concomitant]
  4. XANAX [Concomitant]
  5. BACLOFEN (BACLOFEN) (POWDER) [Concomitant]
  6. DETROL LA (TOLTERODINE L-TARTRATE) [Concomitant]
  7. AREDIA (PAMIDRONATE DISODIUM) (SOLUTION) [Concomitant]
  8. DUCLOLAX (BISACODYL) [Concomitant]
  9. AZT [Concomitant]
  10. LIPITOR [Concomitant]
  11. VIOXX [Concomitant]
  12. TRIAMTERENE-HYDROCHLOROTHIAZIDE (CAPSULES) [Concomitant]
  13. MACROBID (NITROFURANTOIN) (CAPSULES) [Concomitant]
  14. BENICAR (CAPSULES) [Concomitant]
  15. NASACORT (TRIAMCINOLONE ACETONIDE) (SOLUTION) [Concomitant]
  16. DOXEPINE (CAPSULES) [Concomitant]
  17. RITALIN [Concomitant]
  18. STARLIX (NATEGLINIDE) (TABLETS) [Concomitant]
  19. REGLAN (METOCLOPRAMIDE) (TABLETS) [Concomitant]
  20. METFORMIN (METFORMIN) (TABLETS) [Concomitant]
  21. AMARYL [Concomitant]

REACTIONS (14)
  - ARTHRALGIA [None]
  - BACK PAIN [None]
  - CYSTITIS [None]
  - DECREASED APPETITE [None]
  - DIABETES MELLITUS [None]
  - DIABETIC COMA [None]
  - HYPOAESTHESIA [None]
  - HYPOGLYCAEMIA [None]
  - NAUSEA [None]
  - OEDEMA [None]
  - POLLAKIURIA [None]
  - RENAL FAILURE [None]
  - SOMNOLENCE [None]
  - VOMITING [None]
